FAERS Safety Report 6230386-7 (Version None)
Quarter: 2009Q2

REPORT INFORMATION
  Report Type: 
  Country: None (occurrence: None)
  Receive Date: 20090611
  Receipt Date: 20090527
  Transmission Date: 20091009
  Serious: Yes (Hospitalization)
  Sender: FDA-Public Use
  Company Number: 2008-182107-NL

PATIENT
  Age: 26 Year
  Sex: Female

DRUGS (1)
  1. NUVARING [Suspect]
     Indication: CONTRACEPTION
     Dosage: 3 WEEKS IN, 1 WEEK OUT
     Dates: start: 20020101, end: 20041114

REACTIONS (3)
  - COLLAPSE OF LUNG [None]
  - PLEURISY [None]
  - PULMONARY EMBOLISM [None]
